FAERS Safety Report 14694061 (Version 5)
Quarter: 2018Q4

REPORT INFORMATION
  Report Type: Spontaneous
  Country: FR (occurrence: FR)
  Receive Date: 20180329
  Receipt Date: 20181130
  Transmission Date: 20190204
  Serious: Yes (Other)
  Sender: FDA-Public Use
  Company Number: PHHY2018FR047317

PATIENT
  Age: 35 Year
  Sex: Female

DRUGS (6)
  1. PREDNISONE. [Suspect]
     Active Substance: PREDNISONE
     Indication: ANTINUCLEAR ANTIBODY POSITIVE
  2. HYDROXYCHLOROQUINE [Suspect]
     Active Substance: HYDROXYCHLOROQUINE
     Indication: ANTINUCLEAR ANTIBODY POSITIVE
  3. PREDNISONE. [Suspect]
     Active Substance: PREDNISONE
     Indication: INFERTILITY
     Dosage: 15 MG, QD
     Route: 065
  4. HYDROXYCHLOROQUINE [Suspect]
     Active Substance: HYDROXYCHLOROQUINE
     Indication: INFERTILITY
     Dosage: 400 MG, QD
     Route: 065
  5. PREDNISONE. [Suspect]
     Active Substance: PREDNISONE
     Indication: INFERTILITY FEMALE
  6. HYDROXYCHLOROQUINE [Suspect]
     Active Substance: HYDROXYCHLOROQUINE
     Indication: INFERTILITY FEMALE

REACTIONS (6)
  - Maternal exposure during pregnancy [Unknown]
  - Missed labour [Unknown]
  - Intentional product use issue [Unknown]
  - Off label use [Unknown]
  - Exposure during pregnancy [Unknown]
  - Abortion spontaneous [Unknown]
